FAERS Safety Report 5329835-8 (Version None)
Quarter: 2007Q2

REPORT INFORMATION
  Report Type: 
  Country: None (occurrence: None)
  Receive Date: 20070521
  Receipt Date: 20070514
  Transmission Date: 20071010
  Serious: Yes (Death, Hospitalization)
  Sender: FDA-Public Use
  Company Number: AR-BAYER-200711748GDS

PATIENT
  Age: 52 Year
  Sex: Male
  Weight: 68 kg

DRUGS (7)
  1. SORAFENIB [Suspect]
     Indication: NON-SMALL CELL LUNG CANCER
     Dosage: TOTAL DAILY DOSE: 800 MG
     Route: 048
     Dates: start: 20070306, end: 20070315
  2. CARBOPLATIN [Suspect]
     Indication: NON-SMALL CELL LUNG CANCER
     Route: 042
     Dates: start: 20070305, end: 20070305
  3. PACLITAXEL [Suspect]
     Indication: NON-SMALL CELL LUNG CANCER
     Route: 042
     Dates: start: 20070305, end: 20070305
  4. PREDNISONE TAB [Concomitant]
     Indication: DYSPNOEA
     Route: 048
     Dates: start: 20070101, end: 20070101
  5. TAURAL [Concomitant]
     Indication: PROPHYLAXIS
     Route: 048
     Dates: start: 20070101, end: 20070316
  6. CODEINA [Concomitant]
     Indication: COUGH
     Route: 048
     Dates: start: 20070125, end: 20070308
  7. DIPHENHYDRAMINE HCL [Concomitant]
     Indication: PREMEDICATION
     Route: 048
     Dates: start: 20070304, end: 20070306

REACTIONS (3)
  - DYSPNOEA [None]
  - HYPOTENSION [None]
  - SUPRAVENTRICULAR TACHYCARDIA [None]
